FAERS Safety Report 6105681-2 (Version None)
Quarter: 2009Q1

REPORT INFORMATION
  Report Type: 
  Country: None (occurrence: None)
  Receive Date: 20090306
  Receipt Date: 20090223
  Transmission Date: 20090719
  Serious: Yes (Other)
  Sender: FDA-Public Use
  Company Number: US-PFIZER INC-2009175046

PATIENT
  Sex: Female
  Weight: 88.45 kg

DRUGS (15)
  1. LYRICA [Suspect]
     Indication: FIBROMYALGIA
     Dosage: UNK
     Route: 048
     Dates: start: 20070101
  2. VYTORIN [Concomitant]
     Dosage: UNK
  3. RAMIPRIL [Concomitant]
     Dosage: UNK
  4. TENORMIN [Concomitant]
     Dosage: UNK
  5. KLONOPIN [Concomitant]
     Dosage: UNK
  6. TYLENOL [Concomitant]
     Dosage: UNK
  7. ULTRAM [Concomitant]
     Dosage: UNK
  8. SYNTHROID [Concomitant]
     Dosage: UNK
  9. GLUCOTROL [Concomitant]
     Dosage: UNK
  10. PROVIGIL [Concomitant]
     Dosage: UNK
  11. ZOLOFT [Concomitant]
     Dosage: UNK
  12. ASPIRIN [Concomitant]
     Dosage: UNK
  13. LASIX [Concomitant]
     Dosage: UNK
  14. NAVANE [Concomitant]
     Dosage: UNK
  15. LORTAB [Concomitant]

REACTIONS (8)
  - ASTHENIA [None]
  - CONVULSION [None]
  - FACIAL PALSY [None]
  - FIBROMYALGIA [None]
  - GALLBLADDER OPERATION [None]
  - HERNIA REPAIR [None]
  - KNEE ARTHROPLASTY [None]
  - PAIN [None]
